FAERS Safety Report 7483024-X (Version None)
Quarter: 2011Q2

REPORT INFORMATION
  Report Type: 
  Country: None (occurrence: None)
  Receive Date: 20110516
  Receipt Date: 20081020
  Transmission Date: 20111010
  Serious: Yes (Death)
  Sender: FDA-Public Use
  Company Number: US-BAYER-200836333NA

PATIENT
  Age: 67 Year
  Sex: Male
  Weight: 103 kg

DRUGS (23)
  1. MILRINONE [Concomitant]
     Dosage: 10 ML, UNK
     Route: 042
  2. ISOSORBIDE MONONITRATE [Concomitant]
     Dosage: 60 MG, UNK
     Route: 048
  3. CEFUROXIME [Concomitant]
     Dosage: 1500 MG, UNK
     Route: 048
  4. HEPARIN [Concomitant]
     Dosage: 10 ML,(1000 UNITS/ML)
     Route: 042
  5. RED BLOOD CELLS [Concomitant]
     Dosage: 13 U, UNK
     Route: 042
     Dates: start: 20061002
  6. GEMFIBROZIL [Concomitant]
     Dosage: 600 MG, UNK
     Route: 048
  7. CRYOPRECIPITATES [Concomitant]
     Dosage: 20 U, ONCE
     Route: 042
     Dates: start: 20061002, end: 20061002
  8. METOPROLOL SUCCINATE [Concomitant]
     Dosage: 50-75 MG
     Route: 048
  9. VANCOMYCIN HCL [Concomitant]
     Dosage: 1 G, UNK
     Route: 042
  10. DOPAMINE HCL [Concomitant]
     Dosage: 10 ML, UNK
     Route: 042
  11. PLATELETS [Concomitant]
     Dosage: 4 U, UNK
     Route: 042
     Dates: start: 20061002
  12. HEPARIN [Concomitant]
     Dosage: 900 U, UNK
     Route: 058
  13. TRASYLOL [Suspect]
     Indication: CORONARY ARTERY BYPASS
     Route: 042
     Dates: start: 20061002
  14. TRASYLOL [Suspect]
     Indication: AORTIC VALVE REPLACEMENT
  15. SIMVASTATIN [Concomitant]
     Dosage: 80 MG, UNK
     Route: 048
  16. NITROGLYCERIN [Concomitant]
     Dosage: 0.4 MG, UNK
     Route: 042
  17. LASIX [Concomitant]
     Dosage: 40-80 MG
     Route: 048
  18. MORPHINE [Concomitant]
     Dosage: 2 MG, UNK
     Route: 042
  19. LISINOPRIL [Concomitant]
     Dosage: 5 MG, UNK
     Route: 048
  20. NPH INSULIN [Concomitant]
     Dosage: 2-10 UNITS
     Route: 058
  21. AMIODARONE HCL [Concomitant]
     Dosage: 900 MG, UNK
     Route: 048
  22. ACETYLSALICYLIC ACID SRT [Concomitant]
     Dosage: 162-325 MG
     Route: 048
  23. FRESH FROZEN PLASMA [Concomitant]
     Dosage: 1000 CC
     Route: 042
     Dates: start: 20061002

REACTIONS (9)
  - PAIN [None]
  - INJURY [None]
  - DEPRESSION [None]
  - RENAL FAILURE [None]
  - FEAR [None]
  - ANHEDONIA [None]
  - MULTI-ORGAN FAILURE [None]
  - ANXIETY [None]
  - UNEVALUABLE EVENT [None]
